FAERS Safety Report 9262401 (Version 1)
Quarter: 2013Q2

REPORT INFORMATION
  Report Type: Spontaneous
  Country: US (occurrence: None)
  Receive Date: 20130425
  Receipt Date: 20130425
  Transmission Date: 20140414
  Serious: No
  Sender: FDA-Public Use
  Company Number: None

PATIENT
  Age: 59 Year
  Sex: Female

DRUGS (1)
  1. SPRYCEL [Suspect]
     Indication: LYMPHOCYTIC LEUKAEMIA
     Route: 048
     Dates: start: 20121002, end: 201303

REACTIONS (2)
  - Respiratory disorder [None]
  - Arterial disorder [None]
